FAERS Safety Report 22370691 (Version 1)
Quarter: 2023Q2

REPORT INFORMATION
  Report Type: Spontaneous
  Country: BR (occurrence: BR)
  Receive Date: 20230526
  Receipt Date: 20230526
  Transmission Date: 20230721
  Serious: Yes (Other)
  Sender: FDA-Public Use
  Company Number: BR-BAXTER-2023BAX022523

PATIENT
  Age: 37 Year
  Sex: Female
  Weight: 58 kg

DRUGS (2)
  1. IRON [Suspect]
     Active Substance: IRON
     Indication: Serum ferritin decreased
     Dosage: 2 AMPOULES DILUTED IN 250 ML OF SALINE SOLUTION FOR 3 WEEKS
     Route: 042
     Dates: start: 20230508, end: 20230515
  2. SODIUM CHLORIDE [Suspect]
     Active Substance: SODIUM CHLORIDE
     Indication: Medication dilution
     Dosage: 250 ML FOR 3 WEEKS
     Route: 042
     Dates: start: 20230508, end: 20230515

REACTIONS (10)
  - Fear of death [Unknown]
  - Fatigue [Unknown]
  - Paraesthesia [Unknown]
  - Nausea [Unknown]
  - Malaise [Unknown]
  - Oedema [Unknown]
  - Chest pain [Unknown]
  - Dyspnoea [Unknown]
  - Pruritus [Unknown]
  - Rash macular [Unknown]

NARRATIVE: CASE EVENT DATE: 20230508
